FAERS Safety Report 14291264 (Version 1)
Quarter: 2017Q4

REPORT INFORMATION
  Report Type: Spontaneous
  Country: US (occurrence: US)
  Receive Date: 20171215
  Receipt Date: 20171215
  Transmission Date: 20180321
  Serious: No
  Sender: FDA-Public Use
  Company Number: US-PFIZER INC-2017533090

PATIENT
  Age: 75 Year
  Sex: Female
  Weight: 68.4 kg

DRUGS (1)
  1. ATROPINE SULFATE/DIPHENOXYLATE HYDROCHLORIDE [Suspect]
     Active Substance: ATROPINE SULFATE\DIPHENOXYLATE HYDROCHLORIDE
     Indication: DIARRHOEA
     Dosage: 2.5MG TABLET; PRESCRIBED TO TAKE 1 TABLET BY MOUTH EVERY 4 HOURS
     Route: 048
     Dates: start: 201710

REACTIONS (2)
  - Vision blurred [Recovered/Resolved]
  - Intentional product misuse [Unknown]

NARRATIVE: CASE EVENT DATE: 201710
